FAERS Safety Report 6717527-X (Version None)
Quarter: 2010Q2

REPORT INFORMATION
  Report Type: 
  Country: None (occurrence: None)
  Receive Date: 20100503
  Receipt Date: 20100416
  Transmission Date: 20101027
  Serious: Yes (Hospitalization)
  Sender: FDA-Public Use
  Company Number: ACO_00714_2010

PATIENT
  Sex: Male
  Weight: 94.9 kg

DRUGS (9)
  1. AMPYRA [Suspect]
     Indication: MULTIPLE SCLEROSIS
     Dosage: 10 MG BID ORAL
     Route: 048
  2. AMPYRA [Suspect]
     Indication: MULTIPLE SCLEROSIS
     Dosage: 10 MG OD ORAL 1 WEEK UNTIL NOT CONTINUING
     Route: 048
  3. SYNTHROID [Concomitant]
  4. METFORMIN HYDROCHLORIDE [Concomitant]
  5. CHOLECALCIFEROL [Concomitant]
  6. ALLOPURINOL [Concomitant]
  7. CYMBALTA [Concomitant]
  8. COPAXONE [Concomitant]
  9. GABAPENTIN [Concomitant]

REACTIONS (4)
  - ASTHENIA [None]
  - DIZZINESS [None]
  - NAUSEA [None]
  - VOMITING [None]
